FAERS Safety Report 6096544-X (Version None)
Quarter: 2009Q1

REPORT INFORMATION
  Report Type: 
  Country: None (occurrence: None)
  Receive Date: 20090225
  Receipt Date: 20090211
  Transmission Date: 20090719
  Serious: Yes (Hospitalization)
  Sender: FDA-Public Use
  Company Number: 060001M09ESP

PATIENT
  Age: 31 Year
  Sex: Female

DRUGS (3)
  1. SEROPHENE [Suspect]
     Dosage: 50 MG, 1 IN 1 DAYS, ORAL
     Route: 048
  2. PROGESTERONE [Suspect]
     Dosage: 200 MG, 1 IN 1 DAYS, ORAL
     Route: 048
     Dates: start: 20081018, end: 20081118
  3. METFORMIN HCL [Suspect]
     Dosage: 850 MG, 1 IN 1 DAYS, ORAL
     Route: 048
     Dates: start: 20081018, end: 20081118

REACTIONS (1)
  - HAEMATEMESIS [None]
